FAERS Safety Report 10364193 (Version 1)
Quarter: 2014Q3

REPORT INFORMATION
  Report Type: Spontaneous
  Country: US (occurrence: US)
  Receive Date: 20140806
  Receipt Date: 20140806
  Transmission Date: 20150326
  Serious: No
  Sender: FDA-Public Use
  Company Number: US-009507513-1407USA010823

PATIENT
  Sex: Female
  Weight: 58.96 kg

DRUGS (1)
  1. NEXPLANON [Suspect]
     Active Substance: ETONOGESTREL
     Indication: CONTRACEPTION
     Dosage: ONE ROD/ THREE YEARS
     Route: 059
     Dates: start: 201404

REACTIONS (8)
  - Implant site hypoaesthesia [Not Recovered/Not Resolved]
  - Device kink [Not Recovered/Not Resolved]
  - Implant site pain [Not Recovered/Not Resolved]
  - Product quality issue [Unknown]
  - Device deployment issue [Not Recovered/Not Resolved]
  - Device breakage [Not Recovered/Not Resolved]
  - Medical device complication [Not Recovered/Not Resolved]
  - Implant site bruising [Not Recovered/Not Resolved]

NARRATIVE: CASE EVENT DATE: 2014
